FAERS Safety Report 4443766-7 (Version None)
Quarter: 2004Q3

REPORT INFORMATION
  Report Type: 
  Country: None (occurrence: None)
  Receive Date: 20040729
  Receipt Date: 20040407
  Transmission Date: 20050211
  Serious: Yes (Death)
  Sender: FDA-Public Use
  Company Number: USA-2004-0014410

PATIENT
  Age: 44 Year
  Sex: Female

DRUGS (6)
  1. MORPHINE SULFATE [Suspect]
     Dosage: MG,
  2. HYDROCODONE BITARTRATE (SIMILAR TO IND 59,175) (HYDROCODONE BITARTRATE [Suspect]
  3. COCAINE (COCAINE) [Suspect]
     Dosage: MG,
  4. ACETAMINOPHEN (PARACEMATOL) [Suspect]
     Dosage: MG,
  5. CYCLOBENZAPRINE HCL [Suspect]
     Dosage: MG,
  6. ALPRAZOLAM [Concomitant]

REACTIONS (2)
  - ACCIDENTAL OVERDOSE [None]
  - MULTIPLE DRUG OVERDOSE [None]
